FAERS Safety Report 8086810-0 (Version None)
Quarter: 2012Q1

REPORT INFORMATION
  Report Type: 
  Country: None (occurrence: None)
  Receive Date: 20120128
  Receipt Date: 20110518
  Transmission Date: 20120608
  Serious: No
  Sender: FDA-Public Use
  Company Number: US-ABBOTT-11P-163-0726861-00

PATIENT
  Age: 58 Year
  Sex: Male

DRUGS (3)
  1. METAMUCIL-2 [Concomitant]
     Indication: CROHN'S DISEASE
     Dosage: AT BEDTIME
  2. ENTOCORT EC [Concomitant]
     Indication: CROHN'S DISEASE
     Dosage: ALIGN IN THE MORNING, AT BEDTIME FOR CROHN'S
  3. HUMIRA [Suspect]
     Indication: CROHN'S DISEASE
     Dates: start: 20110405

REACTIONS (4)
  - WEIGHT DECREASED [None]
  - PAIN [None]
  - MALAISE [None]
  - DRUG INEFFECTIVE [None]
